FAERS Safety Report 9128444 (Version 1)
Quarter: 2013Q1

REPORT INFORMATION
  Report Type: Spontaneous
  Country: US (occurrence: US)
  Receive Date: 20130228
  Receipt Date: 20130228
  Transmission Date: 20140127
  Serious: No
  Sender: FDA-Public Use
  Company Number: US-GLAXOSMITHKLINE-A0988634A

PATIENT
  Sex: Female

DRUGS (5)
  1. IMITREX [Suspect]
     Indication: MIGRAINE
     Route: 048
  2. NORCO [Concomitant]
  3. LYRICA [Concomitant]
  4. NAPROXEN [Concomitant]
  5. PHYSICAL THERAPY [Concomitant]

REACTIONS (1)
  - Therapeutic response unexpected [Unknown]
